FAERS Safety Report 6207837-7 (Version None)
Quarter: 2009Q2

REPORT INFORMATION
  Report Type: 
  Country: None (occurrence: None)
  Receive Date: 20090522
  Receipt Date: 20090518
  Transmission Date: 20091009
  Serious: Yes (Death)
  Sender: FDA-Public Use
  Company Number: CERZ-1000648

PATIENT
  Age: 8 Year
  Sex: Female

DRUGS (1)
  1. CEREZYME [Suspect]
     Indication: GAUCHER'S DISEASE
     Dosage: UNK, INTRAVENOUS
     Route: 042
     Dates: start: 20020101, end: 20081101

REACTIONS (1)
  - DEATH [None]
